FAERS Safety Report 6346721-5 (Version None)
Quarter: 2009Q3

REPORT INFORMATION
  Report Type: 
  Country: None (occurrence: None)
  Receive Date: 20090904
  Receipt Date: 20090824
  Transmission Date: 20100115
  Serious: Yes (Hospitalization, Other)
  Sender: FDA-Public Use
  Company Number: CLOF-1000676

PATIENT
  Age: 23 Year
  Sex: Male
  Weight: 81 kg

DRUGS (1)
  1. EVOLTRA (CLOFARABINE) SOLUTION FOR INFUSION [Suspect]
     Indication: ACUTE LYMPHOCYTIC LEUKAEMIA
     Dosage: 40 MG/M2, QDX5
     Dates: start: 20090602, end: 20090625

REACTIONS (5)
  - CHORIORETINITIS [None]
  - LUNG NEOPLASM [None]
  - MYOCARDITIS [None]
  - SPLENOMEGALY [None]
  - TOXOPLASMOSIS [None]
